FAERS Safety Report 24370649 (Version 1)
Quarter: 2024Q3

REPORT INFORMATION
  Report Type: Spontaneous
  Country: PT (occurrence: PT)
  Receive Date: 20240927
  Receipt Date: 20240927
  Transmission Date: 20241017
  Serious: Yes (Other)
  Sender: AUROBINDO
  Company Number: PT-BBM-PT-BBM-202402850

PATIENT
  Age: 29 Year
  Sex: Female

DRUGS (8)
  1. LIDOCAINE [Suspect]
     Active Substance: LIDOCAINE
     Indication: Delivery
     Dosage: 2 PERCENT
     Route: 065
  2. LIDOCAINE [Suspect]
     Active Substance: LIDOCAINE
     Indication: Epidural analgesia
  3. ROPIVACAINE [Suspect]
     Active Substance: ROPIVACAINE
     Indication: Epidural analgesia
     Dosage: 0.2 PERCENT
     Route: 040
  4. ROPIVACAINE [Suspect]
     Active Substance: ROPIVACAINE
     Indication: Delivery
  5. ROPIVACAINE [Suspect]
     Active Substance: ROPIVACAINE
     Indication: Epidural analgesia
     Dosage: 0.15 %;7 ML/H;
     Route: 041
  6. ROPIVACAINE [Suspect]
     Active Substance: ROPIVACAINE
     Indication: Delivery
  7. SUFENTANIL [Suspect]
     Active Substance: SUFENTANIL
     Indication: Delivery
     Dosage: 10 MCG
     Route: 040
  8. SUFENTANIL [Suspect]
     Active Substance: SUFENTANIL
     Indication: Epidural analgesia

REACTIONS (2)
  - Horner^s syndrome [Recovered/Resolved]
  - Maternal exposure during delivery [Unknown]
